FAERS Safety Report 4363070-5 (Version None)
Quarter: 2004Q2

REPORT INFORMATION
  Report Type: 
  Country: None (occurrence: None)
  Receive Date: 20040518
  Receipt Date: 20040503
  Transmission Date: 20050107
  Serious: Yes (Other)
  Sender: FDA-Public Use
  Company Number: NL-JNJFOC-20040501554

PATIENT
  Sex: Male

DRUGS (1)
  1. MICONAZOLE [Suspect]
     Indication: ORAL CANDIDIASIS
     Dosage: O.5 DOSES), 1 IN 1 DAY, ORAL
     Route: 048

REACTIONS (1)
  - SUFFOCATION FEELING [None]
